FAERS Safety Report 25225701 (Version 3)
Quarter: 2025Q2

REPORT INFORMATION
  Report Type: Report from Study
  Country: US (occurrence: US)
  Receive Date: 20250422
  Receipt Date: 20250531
  Transmission Date: 20250717
  Serious: Yes (Hospitalization, Other)
  Sender: AMGEN
  Company Number: US-AMGEN-USASP2025078928

PATIENT
  Age: 5 Year
  Sex: Female

DRUGS (2)
  1. PROCYSBI [Suspect]
     Active Substance: CYSTEAMINE BITARTRATE
     Indication: Cystinosis
     Route: 065
     Dates: start: 20210505, end: 20250416
  2. PROCYSBI [Suspect]
     Active Substance: CYSTEAMINE BITARTRATE
     Route: 065
     Dates: start: 20250417

REACTIONS (3)
  - Appendicitis [Unknown]
  - Intestinal perforation [Unknown]
  - Ileus [Unknown]

NARRATIVE: CASE EVENT DATE: 20250416
